FAERS Safety Report 24252390 (Version 1)
Quarter: 2024Q3

REPORT INFORMATION
  Report Type: Other
  Country: CN (occurrence: CN)
  Receive Date: 20240827
  Receipt Date: 20240827
  Transmission Date: 20241017
  Serious: Yes (Life-Threatening, Other)
  Sender: Phathom Pharmaceuticals
  Company Number: CN-PHATHOM PHARMACEUTICALS INC.-2024PHT00727

PATIENT
  Age: 66 Year
  Sex: Female
  Weight: 68 kg

DRUGS (2)
  1. VONOPRAZAN [Suspect]
     Active Substance: VONOPRAZAN
     Indication: Helicobacter infection
     Dosage: 20 MG, BID
     Route: 048
     Dates: start: 20240715, end: 20240719
  2. AMOXICILLIN [Suspect]
     Active Substance: AMOXICILLIN
     Indication: Helicobacter infection
     Dosage: 1 G, TID
     Route: 048
     Dates: start: 20240715, end: 20240719

REACTIONS (3)
  - Drug eruption [Recovering/Resolving]
  - Temperature intolerance [Recovering/Resolving]
  - Pyrexia [Recovering/Resolving]

NARRATIVE: CASE EVENT DATE: 20240718
